FAERS Safety Report 14984753 (Version 1)
Quarter: 2018Q2

REPORT INFORMATION
  Report Type: Spontaneous
  Country: US (occurrence: US)
  Receive Date: 20180607
  Receipt Date: 20180607
  Transmission Date: 20180711
  Serious: No
  Sender: FDA-Public Use
  Company Number: US-FOUNDATIONCONSUMERHC-2018-US-005049

PATIENT
  Age: 23 Year
  Sex: Female
  Weight: 86.18 kg

DRUGS (5)
  1. UNSPECIFIED VITAMIN D SUPPLEMENT [Concomitant]
  2. PLAN B ONE-STEP [Suspect]
     Active Substance: LEVONORGESTREL
     Indication: POST COITAL CONTRACEPTION
     Dosage: 1 DOSE X 1
     Route: 048
     Dates: start: 20180324, end: 20180324
  3. UNSPECIFIED BIOTIN SUPPLEMENT [Concomitant]
  4. USPECIFIED B-12 SUPPLEMENT [Concomitant]
  5. UNSPECIFIED IRON SUPPLEMENT [Concomitant]

REACTIONS (1)
  - Vomiting [Recovered/Resolved]

NARRATIVE: CASE EVENT DATE: 20180324
